FAERS Safety Report 14686755 (Version 6)
Quarter: 2020Q2

REPORT INFORMATION
  Report Type: Report from Study
  Country: US (occurrence: US)
  Receive Date: 20180327
  Receipt Date: 20200629
  Transmission Date: 20200713
  Serious: Yes (Death, Life-Threatening, Hospitalization)
  Sender: FDA-Public Use
  Company Number: US-ACTELION-A-NJ2018-169719

PATIENT
  Age: 77 Year
  Sex: Female
  Weight: 49.43 kg

DRUGS (6)
  1. OPSUMIT [Suspect]
     Active Substance: MACITENTAN
     Indication: PULMONARY ARTERIAL HYPERTENSION
     Dosage: 10 MG, QD
     Route: 048
     Dates: start: 20140619
  2. ELIQUIS [Concomitant]
     Active Substance: APIXABAN
  3. AMLODIPINE [Concomitant]
     Active Substance: AMLODIPINE BESYLATE
  4. UPTRAVI [Suspect]
     Active Substance: SELEXIPAG
     Indication: PULMONARY ARTERIAL HYPERTENSION
     Dosage: 1600 MCG, BID
     Route: 048
     Dates: start: 20160518
  5. ADEMPAS [Concomitant]
     Active Substance: RIOCIGUAT
     Dosage: 2.5 MG, TID
     Dates: start: 20170706
  6. UPTRAVI [Suspect]
     Active Substance: SELEXIPAG
     Dosage: 1800 MCG, BID
     Route: 048
     Dates: start: 201605

REACTIONS (8)
  - Acute respiratory failure [Recovering/Resolving]
  - Irritability [Unknown]
  - Anxiety [Unknown]
  - Dementia [Unknown]
  - Mood swings [Unknown]
  - Death [Fatal]
  - Pulmonary embolism [Recovering/Resolving]
  - Treatment noncompliance [Unknown]

NARRATIVE: CASE EVENT DATE: 20180412
